FAERS Safety Report 20868030 (Version 1)
Quarter: 2022Q2

REPORT INFORMATION
  Report Type: Spontaneous
  Country: US (occurrence: US)
  Receive Date: 20220524
  Receipt Date: 20220524
  Transmission Date: 20220721
  Serious: No
  Sender: FDA-Public Use
  Company Number: US-PFIZER INC-202200721354

PATIENT
  Age: 57 Year
  Sex: Female

DRUGS (18)
  1. PAXLOVID [Suspect]
     Active Substance: NIRMATRELVIR\RITONAVIR
     Indication: COVID-19 treatment
     Dosage: UNK
     Dates: start: 20220503, end: 20220507
  2. ZOLOFT [Concomitant]
     Active Substance: SERTRALINE HYDROCHLORIDE
     Dosage: UNK
     Dates: start: 202106
  3. ADVIL [Concomitant]
     Active Substance: IBUPROFEN
     Dosage: UNK
     Dates: start: 202204
  4. SUDAFED [Concomitant]
     Active Substance: PSEUDOEPHEDRINE HYDROCHLORIDE
     Dosage: UNK
     Dates: start: 20220501
  5. ACETYLCYSTEINE [Concomitant]
     Active Substance: ACETYLCYSTEINE
     Dosage: UNK
     Dates: start: 20220425
  6. VITAMIN D3 K2 [Concomitant]
     Dosage: UNK
     Dates: start: 200101
  7. MULTIMIN [ASCORBIC ACID;DEXPANTHENOL;ERGOCALCIFEROL;NICOTINAMIDE;PYRID [Concomitant]
     Dosage: UNK
     Dates: start: 202101
  8. MULTIMIN [ASCORBIC ACID;DEXPANTHENOL;ERGOCALCIFEROL;NICOTINAMIDE;PYRID [Concomitant]
     Dates: start: 202111
  9. LIPOSOMAL VITAMIN C [Concomitant]
     Dosage: UNK
     Dates: start: 202001
  10. SUPREME [CIPROFLOXACIN HYDROCHLORIDE] [Concomitant]
     Dosage: UNK
     Dates: start: 202203
  11. MUCOSA [Concomitant]
     Active Substance: GUAIFENESIN
     Dosage: UNK
     Dates: start: 202112
  12. CETIRIZINE HYDROCHLORIDE [Concomitant]
     Active Substance: CETIRIZINE HYDROCHLORIDE
     Dosage: UNK
     Dates: start: 202006
  13. TRAZODONE [Concomitant]
     Active Substance: TRAZODONE HYDROCHLORIDE
     Dosage: UNK
     Dates: start: 202109
  14. PROGESTERONE [Concomitant]
     Active Substance: PROGESTERONE
     Dosage: UNK
     Dates: start: 201801
  15. LIOTHYRONINE [Concomitant]
     Active Substance: LIOTHYRONINE
     Dosage: UNK
     Dates: start: 202001
  16. SBI PROTECT [Concomitant]
     Dosage: UNK
     Dates: start: 202111
  17. D-LENOLATE [Concomitant]
     Dosage: UNK
     Dates: start: 20220429, end: 20220516
  18. CULTURELLE PROBIOTICS [Concomitant]
     Dosage: UNK
     Dates: start: 202001

REACTIONS (2)
  - COVID-19 [Recovering/Resolving]
  - Disease recurrence [Recovering/Resolving]

NARRATIVE: CASE EVENT DATE: 20220509
